FAERS Safety Report 9927316 (Version 1)
Quarter: 2014Q1

REPORT INFORMATION
  Report Type: Report from Study
  Country: US (occurrence: US)
  Receive Date: 20140226
  Receipt Date: 20140226
  Transmission Date: 20141002
  Serious: Yes (Other)
  Sender: FDA-Public Use
  Company Number: PHEH2014US003538

PATIENT
  Sex: Female

DRUGS (1)
  1. EXTAVIA [Suspect]
     Indication: MULTIPLE SCLEROSIS
     Dosage: 0.25 MG, EVERY OTHER DAY
     Route: 058

REACTIONS (3)
  - Blindness [Not Recovered/Not Resolved]
  - Frustration [Not Recovered/Not Resolved]
  - Depressed mood [Not Recovered/Not Resolved]
